FAERS Safety Report 6607323-6 (Version None)
Quarter: 2010Q1

REPORT INFORMATION
  Report Type: 
  Country: None (occurrence: None)
  Receive Date: 20100228
  Receipt Date: 20100216
  Transmission Date: 20100710
  Serious: Yes (Other)
  Sender: FDA-Public Use
  Company Number: TR-BRISTOL-MYERS SQUIBB COMPANY-14993695

PATIENT
  Age: 56 Year
  Sex: Male

DRUGS (5)
  1. CYCLOPHOSPHAMIDE [Suspect]
     Indication: NON-HODGKIN'S LYMPHOMA
  2. VINCRISTINE [Suspect]
     Indication: NON-HODGKIN'S LYMPHOMA
  3. RITUXIMAB [Suspect]
     Indication: NON-HODGKIN'S LYMPHOMA
  4. ADRIAMYCIN PFS [Suspect]
     Indication: NON-HODGKIN'S LYMPHOMA
  5. PREDNISOLONE [Suspect]
     Indication: NON-HODGKIN'S LYMPHOMA

REACTIONS (1)
  - HEPATITIS B [None]
